FAERS Safety Report 5501097-8 (Version None)
Quarter: 2007Q4

REPORT INFORMATION
  Report Type: 
  Country: None (occurrence: None)
  Receive Date: 20071029
  Receipt Date: 20071017
  Transmission Date: 20080405
  Serious: Yes (Other)
  Sender: FDA-Public Use
  Company Number: US-PFIZER INC-2007088186

PATIENT
  Age: 49 Year
  Sex: Female
  Weight: 68.2 kg

DRUGS (8)
  1. CHANTIX [Suspect]
     Indication: SMOKING CESSATION THERAPY
     Route: 048
  2. ANALGESICS [Concomitant]
  3. XANAX [Concomitant]
  4. CHOLESTEROL [Concomitant]
  5. VITAMINS [Concomitant]
  6. CALCIUM WITH VITAMIN D [Concomitant]
  7. VARIOUS ALIMENTARY TRACT + METABOLISM PRODUCT [Concomitant]
  8. DRUG, UNSPECIFIED [Concomitant]

REACTIONS (4)
  - ABNORMAL DREAMS [None]
  - MASTECTOMY [None]
  - NAUSEA [None]
  - SINUSITIS [None]
